FAERS Safety Report 23957987 (Version 2)
Quarter: 2024Q3

REPORT INFORMATION
  Report Type: Spontaneous
  Country: ID (occurrence: ID)
  Receive Date: 20240610
  Receipt Date: 20240813
  Transmission Date: 20241016
  Serious: Yes (Other)
  Sender: VERITY PHARMACEUTICALS
  Company Number: ID-VER-202400001

PATIENT
  Sex: Female

DRUGS (1)
  1. TRIPTORELIN PAMOATE [Suspect]
     Active Substance: TRIPTORELIN PAMOATE
     Indication: Endometriosis
     Dosage: 3.75 MILLIGRAM(S), 1 IN 28 DAY, POWDER AND SOLVENT FOR SUSPENSION FOR INJECTION (LYOPHILIZATION POWD
     Route: 030

REACTIONS (3)
  - Dyspareunia [Unknown]
  - Heavy menstrual bleeding [Unknown]
  - Abdominal pain [Unknown]
